FAERS Safety Report 26126725 (Version 3)
Quarter: 2025Q4

REPORT INFORMATION
  Report Type: Spontaneous
  Country: JP (occurrence: JP)
  Receive Date: 20251205
  Receipt Date: 20251230
  Transmission Date: 20260118
  Serious: Yes (Hospitalization)
  Sender: ABBVIE
  Company Number: JP-ABBVIE-6576518

PATIENT
  Age: 69 Year
  Sex: Male

DRUGS (1)
  1. RINVOQ [Suspect]
     Active Substance: UPADACITINIB
     Indication: Dermatitis atopic
     Route: 048

REACTIONS (4)
  - Invasive pneumococcal disease [Recovering/Resolving]
  - Bacteraemia [Unknown]
  - Extradural abscess [Recovering/Resolving]
  - Immunosuppression [Unknown]
